APPROVED DRUG PRODUCT: CHLORPROMAZINE HYDROCHLORIDE
Active Ingredient: CHLORPROMAZINE HYDROCHLORIDE
Strength: 100MG
Dosage Form/Route: TABLET;ORAL
Application: A214827 | Product #003 | TE Code: AB
Applicant: MSN LABORATORIES PRIVATE LTD
Approved: Jan 27, 2022 | RLD: No | RS: No | Type: RX